FAERS Safety Report 10036256 (Version 1)
Quarter: 2014Q1

REPORT INFORMATION
  Report Type: Spontaneous
  Country: IN (occurrence: IN)
  Receive Date: 20140325
  Receipt Date: 20140325
  Transmission Date: 20141002
  Serious: Yes (Other)
  Sender: FDA-Public Use
  Company Number: IN-BAXTER-2014BAX014848

PATIENT
  Age: 4 Year
  Sex: 0

DRUGS (3)
  1. HUMAN IMMUNOGLOBULIN IVIG, TRIPLE VIRALLY REDUCED (TVR) SOLUTION FOR I [Suspect]
     Indication: KAWASAKI^S DISEASE
     Dosage: 2G/KG FOR 24 HOURS
     Route: 042
  2. METHYLPREDNISOLONE [Concomitant]
     Indication: HISTIOCYTOSIS HAEMATOPHAGIC
     Route: 065
  3. ASPIRIN [Concomitant]
     Indication: PYREXIA
     Route: 065

REACTIONS (7)
  - Encephalopathy [Unknown]
  - Hepatosplenomegaly [Unknown]
  - Pancytopenia [Unknown]
  - Histiocytosis haematophagic [Unknown]
  - Pyrexia [Unknown]
  - Gingival bleeding [Recovering/Resolving]
  - Hepatic function abnormal [Unknown]
